FAERS Safety Report 15215846 (Version 2)
Quarter: 2018Q3

REPORT INFORMATION
  Report Type: Spontaneous
  Country: BR (occurrence: BR)
  Receive Date: 20180730
  Receipt Date: 20180817
  Transmission Date: 20181010
  Serious: Yes (Other)
  Sender: FDA-Public Use
  Company Number: BR-PFIZER INC-2018293109

PATIENT
  Age: 65 Year
  Sex: Female

DRUGS (9)
  1. FELDENE [Suspect]
     Active Substance: PIROXICAM
     Indication: PROCTALGIA
     Dosage: 20 MG, SOMETIMES 2 OR 3X/DAY
     Dates: start: 201804
  2. FELDENE [Suspect]
     Active Substance: PIROXICAM
     Indication: PAIN
     Dosage: 20 MG, SOMETIMES 2 OR 3X/DAY
  3. FLUIR [Concomitant]
     Active Substance: FORMOTEROL FUMARATE
     Dosage: UNK
  4. AEROLIN [Concomitant]
     Active Substance: ALBUTEROL
     Dosage: UNK
  5. BROMAZEPAM [Concomitant]
     Active Substance: BROMAZEPAM
     Indication: SLEEP DISORDER
     Dosage: UNK
  6. RIVOTRIL [Concomitant]
     Active Substance: CLONAZEPAM
     Indication: SLEEP DISORDER
     Dosage: UNK
  7. OLMETECANLO [Suspect]
     Active Substance: AMLODIPINE BESYLATE\OLMESARTAN MEDOXOMIL
     Indication: HYPERTENSION
     Dosage: 1 TABLET/DAY (OLMESARTAN 40 MG / AMLODIPINE 5 MG)
     Dates: start: 2008
  8. GLIFAGE XR [Concomitant]
     Active Substance: METFORMIN HYDROCHLORIDE
     Indication: DIABETES MELLITUS
     Dosage: UNK
  9. LAMOTRIGINE. [Concomitant]
     Active Substance: LAMOTRIGINE
     Indication: SLEEP DISORDER
     Dosage: UNK
     Dates: start: 201806

REACTIONS (8)
  - Rash macular [Recovered/Resolved]
  - Movement disorder [Not Recovered/Not Resolved]
  - Catarrh [Not Recovered/Not Resolved]
  - Memory impairment [Not Recovered/Not Resolved]
  - Haematochezia [Recovered/Resolved]
  - Intentional product misuse [Not Recovered/Not Resolved]
  - Drug ineffective [Not Recovered/Not Resolved]
  - Diarrhoea [Recovered/Resolved]

NARRATIVE: CASE EVENT DATE: 2008
